FAERS Safety Report 9559716 (Version 3)
Quarter: 2013Q4

REPORT INFORMATION
  Report Type: Spontaneous
  Country: US (occurrence: None)
  Receive Date: 20130924
  Receipt Date: 20131018
  Transmission Date: 20140711
  Serious: Yes (Other)
  Sender: FDA-Public Use
  Company Number: AUR-APL-2013-06656

PATIENT
  Sex: Male
  Weight: 70.31 kg

DRUGS (1)
  1. METFORMIN [Suspect]
     Indication: DIABETES MELLITUS
     Dosage: (500 MG, 2 IN 1 D)
     Dates: start: 20130418

REACTIONS (4)
  - Product odour abnormal [None]
  - Malaise [None]
  - Gastrointestinal disorder [None]
  - General physical health deterioration [None]
